FAERS Safety Report 9410153 (Version 2)
Quarter: 2013Q3

REPORT INFORMATION
  Report Type: Spontaneous
  Country: US (occurrence: US)
  Receive Date: 20130719
  Receipt Date: 20130821
  Transmission Date: 20140515
  Serious: Yes (Hospitalization)
  Sender: FDA-Public Use
  Company Number: US-B.I. PHARMACEUTICALS,INC./RIDGEFIELD-2013-BI-20877BP

PATIENT
  Age: 79 Year
  Sex: Female
  Weight: 75.75 kg

DRUGS (6)
  1. PRADAXA [Suspect]
     Indication: ATRIAL FIBRILLATION
     Dosage: 150 MG
     Dates: start: 20110411, end: 20110716
  2. ASPIRIN [Concomitant]
  3. AMIODARONE [Concomitant]
  4. PRILOSEC [Concomitant]
  5. PRAVASTATIN [Concomitant]
  6. LISINOPRIL [Concomitant]

REACTIONS (2)
  - Gastrointestinal haemorrhage [Unknown]
  - Haemorrhagic anaemia [Unknown]
